FAERS Safety Report 5422334-4 (Version None)
Quarter: 2007Q3

REPORT INFORMATION
  Report Type: 
  Country: None (occurrence: None)
  Receive Date: 20070822
  Receipt Date: 20070723
  Transmission Date: 20080115
  Serious: No
  Sender: FDA-Public Use
  Company Number: US-JNJFOC-20070705687

PATIENT
  Age: 12 Year
  Sex: Male

DRUGS (2)
  1. INVEGA [Suspect]
     Indication: CONDUCT DISORDER
     Route: 048
     Dates: start: 20070424, end: 20070713
  2. CONCERTA [Concomitant]
     Indication: ATTENTION DEFICIT/HYPERACTIVITY DISORDER
     Route: 048

REACTIONS (1)
  - BILATERAL BREAST BUDS [None]
